FAERS Safety Report 16990393 (Version 2)
Quarter: 2019Q4

REPORT INFORMATION
  Report Type: Spontaneous
  Country: US (occurrence: US)
  Receive Date: 20191104
  Receipt Date: 20191118
  Transmission Date: 20200122
  Serious: No
  Sender: FDA-Public Use
  Company Number: US-PFIZER INC-2019470876

PATIENT
  Age: 63 Year
  Sex: Female
  Weight: 94.79 kg

DRUGS (2)
  1. IBRANCE [Suspect]
     Active Substance: PALBOCICLIB
     Indication: BREAST CANCER METASTATIC
     Dosage: 100 MG, CYCLIC(D1-21 Q28DAYS)
     Route: 048
     Dates: start: 20191022
  2. IBRANCE [Suspect]
     Active Substance: PALBOCICLIB
     Dosage: 100 MG, CYCLIC(DAYS 1-21 Q (EVERY) 28 DAYS)
     Route: 048
     Dates: start: 20191021

REACTIONS (4)
  - Back pain [Unknown]
  - Compression fracture [Unknown]
  - Hot flush [Unknown]
  - Fatigue [Unknown]
